FAERS Safety Report 7277886-9 (Version None)
Quarter: 2011Q1

REPORT INFORMATION
  Report Type: 
  Country: None (occurrence: None)
  Receive Date: 20110207
  Receipt Date: 20110130
  Transmission Date: 20110831
  Serious: Yes (Death)
  Sender: FDA-Public Use
  Company Number: CN-ROCHE-593917

PATIENT
  Sex: Female
  Weight: 60 kg

DRUGS (9)
  1. FOLIC ACID [Concomitant]
     Route: 048
  2. TOCILIZUMAB [Suspect]
     Indication: RHEUMATOID ARTHRITIS
     Dosage: DOSE/FREQUENCY: AS REPORTED. LAST DOSE PRIOR TO SAE: 6 OCTOBER 2008.
     Route: 042
     Dates: start: 20081006, end: 20081006
  3. TOCILIZUMAB [Suspect]
     Dosage: 4TH INFUSION (AS PER GUIDED QUESTIONNAIRE). DOSE: 8 MG/KG. TOTAL MONTHLY DOSE: 432 MG.
     Route: 042
     Dates: start: 20080903
  4. TOCILIZUMAB [Suspect]
     Dosage: 1ST INFUSION (AS PER GUIDED QUESTIONNAIRE).
     Route: 042
     Dates: start: 20080611
  5. LEFLUNOMIDE [Concomitant]
     Route: 048
  6. PLACEBO [Suspect]
     Indication: RHEUMATOID ARTHRITIS
     Dosage: PROVIDED AS: MRA 8 MG/KG + DMARD.
     Route: 042
  7. TOCILIZUMAB [Suspect]
     Dosage: 3RD INFUSION (AS PER GUIDED QUESTIONNAIRE).
     Route: 042
     Dates: start: 20080806
  8. TOCILIZUMAB [Suspect]
     Dosage: 2ND INFUSION (AS PER GUIDED QUESTIONNAIRE).
     Route: 042
     Dates: start: 20080709
  9. IBUPROFEN [Concomitant]
     Route: 048

REACTIONS (2)
  - ATRIAL FIBRILLATION [None]
  - SUBARACHNOID HAEMORRHAGE [None]
